FAERS Safety Report 8262805-9 (Version None)
Quarter: 2012Q2

REPORT INFORMATION
  Report Type: 
  Country: None (occurrence: None)
  Receive Date: 20120405
  Receipt Date: 20120326
  Transmission Date: 20120825
  Serious: Yes (Hospitalization)
  Sender: FDA-Public Use
  Company Number: US-SANOFI-AVENTIS-2012SA023334

PATIENT
  Age: 64 Year
  Sex: Male

DRUGS (8)
  1. METFORMIN HCL [Suspect]
     Indication: TYPE 2 DIABETES MELLITUS
     Route: 065
  2. INSULIN GLARGINE [Suspect]
     Indication: TYPE 2 DIABETES MELLITUS
     Route: 065
  3. ATENOLOL [Suspect]
     Route: 065
  4. PLACEBO [Suspect]
     Indication: TYPE 2 DIABETES MELLITUS
     Route: 065
     Dates: start: 20110901
  5. DILTIAZEM HYDROCHLORIDE [Suspect]
     Route: 065
  6. ACARBOSE [Suspect]
     Indication: TYPE 2 DIABETES MELLITUS
     Route: 065
  7. INSULIN ASPART [Suspect]
     Indication: TYPE 2 DIABETES MELLITUS
     Route: 065
  8. ANTI-DIABETICS [Suspect]
     Indication: TYPE 2 DIABETES MELLITUS
     Route: 065
     Dates: start: 20110901

REACTIONS (1)
  - ATRIAL FIBRILLATION [None]
